FAERS Safety Report 5811825-X (Version None)
Quarter: 2008Q3

REPORT INFORMATION
  Report Type: 
  Country: None (occurrence: None)
  Receive Date: 20080716
  Receipt Date: 20080707
  Transmission Date: 20090109
  Serious: Yes (Hospitalization)
  Sender: FDA-Public Use
  Company Number: SE-JNJFOC-20080701545

PATIENT
  Age: 66 Year
  Sex: Female

DRUGS (18)
  1. REMICADE [Suspect]
     Indication: RHEUMATOID ARTHRITIS
     Route: 042
  2. ENBREL [Suspect]
     Indication: DRUG USE FOR UNKNOWN INDICATION
     Route: 058
  3. MABTHERA [Suspect]
     Indication: ARTHROPATHY
     Dosage: ENDED-SPRING 2007
     Route: 042
  4. NEXIUM [Concomitant]
  5. ATACAND [Concomitant]
     Route: 048
  6. FOSAMAX [Concomitant]
     Route: 048
  7. PRIMPERAN TAB [Concomitant]
     Route: 048
  8. SIMVASTATIN [Concomitant]
  9. FOLACIN [Concomitant]
  10. HEMINEVRIN [Concomitant]
  11. PREDNISOLONE [Concomitant]
  12. ACETAMINOPHEN W/ CODEINE [Concomitant]
  13. BETOLVEX [Concomitant]
  14. METHOTREXATE [Concomitant]
  15. ORUDIS [Concomitant]
  16. ATENOLOL [Concomitant]
  17. CALCICHEW D3 [Concomitant]
  18. TIPAROL [Concomitant]

REACTIONS (3)
  - ARTHRITIS BACTERIAL [None]
  - BREAST CANCER [None]
  - RHEUMATOID ARTHRITIS [None]
